FAERS Safety Report 9418670 (Version 1)
Quarter: 2013Q3

REPORT INFORMATION
  Report Type: Spontaneous
  Country: US (occurrence: US)
  Receive Date: 20130725
  Receipt Date: 20130725
  Transmission Date: 20140515
  Serious: Yes (Other)
  Sender: FDA-Public Use
  Company Number: US-JNJFOC-20130708794

PATIENT
  Sex: Female

DRUGS (3)
  1. BENADRYL ALLERGY ULTRATAB [Suspect]
     Route: 048
  2. BENADRYL ALLERGY ULTRATAB [Suspect]
     Indication: SLEEP DISORDER THERAPY
     Route: 048
  3. EYE DROPS (UNSPECIFIED) [Concomitant]
     Indication: GLAUCOMA

REACTIONS (4)
  - Glaucoma [Unknown]
  - Eye swelling [Unknown]
  - Ocular discomfort [Unknown]
  - Off label use [Unknown]
